FAERS Safety Report 5627657-1 (Version None)
Quarter: 2008Q1

REPORT INFORMATION
  Report Type: 
  Country: None (occurrence: None)
  Receive Date: 20080214
  Receipt Date: 20080214
  Transmission Date: 20080703
  Serious: Yes (Other)
  Sender: FDA-Public Use
  Company Number: None

PATIENT
  Sex: Male
  Weight: 13.08 kg

DRUGS (1)
  1. TAMIFLU [Suspect]
     Indication: INFLUENZA
     Dosage: 1/2 TSPN BID PO (LAST DOSE 2/9 IN EVENING)
     Route: 048
     Dates: start: 20080206, end: 20080209

REACTIONS (1)
  - HYPOTHERMIA [None]
